FAERS Safety Report 9933020 (Version 1)
Quarter: 2014Q1

REPORT INFORMATION
  Report Type: Spontaneous
  Country: US (occurrence: US)
  Receive Date: 20140228
  Receipt Date: 20140228
  Transmission Date: 20141002
  Serious: No
  Sender: FDA-Public Use
  Company Number: US-GLAXOSMITHKLINE-A1044149A

PATIENT
  Age: 39 Year
  Sex: Male

DRUGS (5)
  1. LAMICTAL [Suspect]
     Indication: OBSESSIVE-COMPULSIVE DISORDER
     Dosage: 200MG PER DAY
     Route: 048
     Dates: start: 20130725, end: 20130915
  2. ADDERALL [Concomitant]
     Dosage: 20MG TWICE PER DAY
  3. VIIBRYD [Concomitant]
     Dosage: 40MG PER DAY
  4. DIAZEPAM [Concomitant]
     Dosage: 10MG AS REQUIRED
  5. KETAMINE [Concomitant]

REACTIONS (2)
  - Rash [Recovered/Resolved]
  - Urticaria [Recovered/Resolved]
